FAERS Safety Report 6543983-6 (Version None)
Quarter: 2010Q1

REPORT INFORMATION
  Report Type: 
  Country: None (occurrence: None)
  Receive Date: 20100120
  Receipt Date: 20100108
  Transmission Date: 20100710
  Serious: Yes (Hospitalization, Other)
  Sender: FDA-Public Use
  Company Number: PHHY2010BR01282

PATIENT
  Sex: Male
  Weight: 110 kg

DRUGS (2)
  1. FORASEQ [Suspect]
     Indication: DYSPNOEA
     Dosage: UNK
  2. CORTICOSTEROIDS [Concomitant]

REACTIONS (10)
  - DRUG DEPENDENCE [None]
  - DYSPNOEA [None]
  - FATIGUE [None]
  - GENERALISED OEDEMA [None]
  - HEPATIC STEATOSIS [None]
  - NASOPHARYNGITIS [None]
  - NEPHROLITHIASIS [None]
  - PAIN [None]
  - TREATMENT NONCOMPLIANCE [None]
  - WEIGHT INCREASED [None]
